FAERS Safety Report 8044651-4 (Version None)
Quarter: 2012Q1

REPORT INFORMATION
  Report Type: 
  Country: None (occurrence: None)
  Receive Date: 20120113
  Receipt Date: 20120105
  Transmission Date: 20120608
  Serious: Yes (Hospitalization)
  Sender: FDA-Public Use
  Company Number: ES-SANOFI-AVENTIS-2012SA000871

PATIENT
  Age: 81 Year
  Sex: Male

DRUGS (6)
  1. ASPIRIN [Concomitant]
     Indication: PROPHYLAXIS
     Dosage: PHARMACEUTICAL DOSAGE FORM CODED AS 9
     Route: 048
  2. NEXIUM [Concomitant]
     Dosage: PHARMACEUTICAL DOSAGE FORM 94.
     Route: 048
  3. ENANTYUM [Interacting]
     Dosage: FORM CODED AS 9
     Route: 048
     Dates: start: 20111028, end: 20111110
  4. FUROSEMIDE [Suspect]
     Indication: CARDIAC FAILURE
     Dosage: FORM CODED AS 245
     Route: 048
     Dates: start: 20080101, end: 20111110
  5. METFORMIN HCL [Concomitant]
     Indication: TYPE 2 DIABETES MELLITUS
     Route: 048
     Dates: end: 20111110
  6. CHLORTHALIDONE [Interacting]
     Indication: CARDIAC FAILURE
     Dosage: FORM CODED AS 245
     Route: 048
     Dates: start: 20100101, end: 20111110

REACTIONS (4)
  - RENAL FAILURE ACUTE [None]
  - BLOOD UREA INCREASED [None]
  - BLOOD CREATININE INCREASED [None]
  - DRUG INTERACTION [None]
